FAERS Safety Report 5390144-2 (Version None)
Quarter: 2007Q3

REPORT INFORMATION
  Report Type: 
  Country: None (occurrence: None)
  Receive Date: 20070716
  Receipt Date: 20070716
  Transmission Date: 20080115
  Serious: Yes (Other)
  Sender: FDA-Public Use
  Company Number: None

PATIENT
  Age: 34 Year
  Sex: Female
  Weight: 77.5651 kg

DRUGS (2)
  1. BUPROPION HCL [Suspect]
     Indication: COMPULSIONS
     Dosage: 300 MG 1 PO
     Route: 048
     Dates: start: 20070427, end: 20070707
  2. BUPROPION HCL [Suspect]
     Indication: DEPRESSION
     Dosage: 300 MG 1 PO
     Route: 048
     Dates: start: 20070427, end: 20070707

REACTIONS (6)
  - DRUG INEFFECTIVE [None]
  - FATIGUE [None]
  - LETHARGY [None]
  - PHARMACEUTICAL PRODUCT COMPLAINT [None]
  - THERAPEUTIC RESPONSE UNEXPECTED WITH DRUG SUBSTITUTION [None]
  - WEIGHT INCREASED [None]
